FAERS Safety Report 15494340 (Version 1)
Quarter: 2018Q4

REPORT INFORMATION
  Report Type: Spontaneous
  Country: FR (occurrence: FR)
  Receive Date: 20181012
  Receipt Date: 20181012
  Transmission Date: 20190205
  Serious: Yes (Hospitalization)
  Sender: FDA-Public Use
  Company Number: FR-CELGENEUS-FRA-20181001176

PATIENT
  Age: 68 Year
  Sex: Male
  Weight: 114 kg

DRUGS (3)
  1. KYPROLIS [Concomitant]
     Active Substance: CARFILZOMIB
     Indication: PLASMA CELL MYELOMA
     Route: 041
     Dates: start: 20180902, end: 20180903
  2. REVLIMID [Suspect]
     Active Substance: LENALIDOMIDE
     Indication: PLASMA CELL MYELOMA
     Dosage: 10 MILLIGRAM
     Route: 048
     Dates: start: 20180901
  3. KYPROLIS [Concomitant]
     Active Substance: CARFILZOMIB
     Route: 041
     Dates: start: 20180902, end: 20180903

REACTIONS (1)
  - Bradyarrhythmia [Not Recovered/Not Resolved]

NARRATIVE: CASE EVENT DATE: 20180904
